FAERS Safety Report 5121287-6 (Version None)
Quarter: 2006Q4

REPORT INFORMATION
  Report Type: 
  Country: None (occurrence: None)
  Receive Date: 20061002
  Receipt Date: 20060918
  Transmission Date: 20070319
  Serious: Yes (Disabling, Other)
  Sender: FDA-Public Use
  Company Number: 2006113022

PATIENT
  Age: 79 Year
  Sex: Female
  Weight: 76.6579 kg

DRUGS (9)
  1. LYRICA [Suspect]
     Indication: ARTHRITIS
     Dosage: 100 MG (50 MG, 2 IN 1 D);
     Dates: start: 20060830
  2. LYRICA [Suspect]
     Indication: PAIN IN EXTREMITY
     Dosage: 100 MG (50 MG, 2 IN 1 D);
     Dates: start: 20060830
  3. LYRICA [Suspect]
     Indication: SPINAL COLUMN STENOSIS
     Dosage: 100 MG (50 MG, 2 IN 1 D);
     Dates: start: 20060830
  4. OXYCODONE HCL [Concomitant]
  5. SYNTHROID [Concomitant]
  6. TRICOR [Concomitant]
  7. MONTELUKAST SODIUM [Concomitant]
  8. FOSAMAX [Concomitant]
  9. ANTIHISTAMINES FOR SYSTEMIC USE [Concomitant]

REACTIONS (3)
  - ABASIA [None]
  - ARTHRALGIA [None]
  - MUSCULAR WEAKNESS [None]
